FAERS Safety Report 15986466 (Version 1)
Quarter: 2019Q1

REPORT INFORMATION
  Report Type: Spontaneous
  Country: US (occurrence: US)
  Receive Date: 20190220
  Receipt Date: 20190220
  Transmission Date: 20190418
  Serious: Yes (Other)
  Sender: FDA-Public Use
  Company Number: PHEH2019US007078

PATIENT
  Sex: Male
  Weight: 18.14 kg

DRUGS (1)
  1. AMOXICILLIN SANDOZ [Suspect]
     Active Substance: AMOXICILLIN
     Indication: EAR INFECTION
     Dosage: 8 ML, BID (RECEIVED TWO DOSES)
     Route: 065

REACTIONS (1)
  - Urticaria [Unknown]
